FAERS Safety Report 15596471 (Version 1)
Quarter: 2018Q4

REPORT INFORMATION
  Report Type: Other
  Country: US (occurrence: US)
  Receive Date: 20181108
  Receipt Date: 20181108
  Transmission Date: 20190205
  Serious: Yes (Disabling)
  Sender: FDA-Public Use
  Company Number: US-ALLIED PHARMA, LLC-2058571

PATIENT
  Age: 7 Year
  Sex: Male

DRUGS (1)
  1. CLARITHROMYCIN. [Suspect]
     Active Substance: CLARITHROMYCIN
     Indication: LYMPHADENITIS
     Route: 065

REACTIONS (1)
  - Deafness unilateral [Not Recovered/Not Resolved]
